FAERS Safety Report 6011918-0 (Version None)
Quarter: 2008Q4

REPORT INFORMATION
  Report Type: 
  Country: None (occurrence: None)
  Receive Date: 20081218
  Receipt Date: 20081002
  Transmission Date: 20090506
  Serious: No
  Sender: FDA-Public Use
  Company Number: US-ASTRAZENECA-2008UW21546

PATIENT
  Age: 58 Year
  Sex: Male
  Weight: 93 kg

DRUGS (4)
  1. CRESTOR [Suspect]
     Indication: BLOOD CHOLESTEROL INCREASED
     Route: 048
     Dates: start: 20080926
  2. BENICAR [Concomitant]
  3. SYNTHROID [Concomitant]
  4. ULTRAM ER [Concomitant]
     Dates: start: 20080926

REACTIONS (3)
  - ABDOMINAL PAIN [None]
  - FLATULENCE [None]
  - SOMNOLENCE [None]
